FAERS Safety Report 25957688 (Version 1)
Quarter: 2025Q4

REPORT INFORMATION
  Report Type: Spontaneous
  Country: US (occurrence: US)
  Receive Date: 20251024
  Receipt Date: 20251024
  Transmission Date: 20260118
  Serious: No
  Sender: PFIZER
  Company Number: US-PFIZER INC-202500208495

PATIENT
  Age: 73 Year
  Sex: Female

DRUGS (3)
  1. BUPIVACAINE HYDROCHLORIDE [Suspect]
     Active Substance: BUPIVACAINE HYDROCHLORIDE
     Indication: Spinal anaesthesia
     Dosage: UNK
     Dates: start: 20251014, end: 20251014
  2. ATORVASTATIN [Concomitant]
     Active Substance: ATORVASTATIN
     Dosage: UNK
  3. MELOXICAM [Concomitant]
     Active Substance: MELOXICAM
     Dosage: UNK

REACTIONS (2)
  - Drug ineffective [Unknown]
  - Hypotension [Unknown]

NARRATIVE: CASE EVENT DATE: 20251014
